FAERS Safety Report 16334022 (Version 1)
Quarter: 2019Q2

REPORT INFORMATION
  Report Type: Spontaneous
  Country: IT (occurrence: IT)
  Receive Date: 20190520
  Receipt Date: 20190520
  Transmission Date: 20190711
  Serious: Yes (Hospitalization)
  Sender: FDA-Public Use
  Company Number: IT-TEVA-2019-IT-1051391

PATIENT
  Age: 83 Year
  Sex: Female
  Weight: 80 kg

DRUGS (2)
  1. VERAPAMIL [Suspect]
     Active Substance: VERAPAMIL HYDROCHLORIDE
     Route: 048
     Dates: start: 20190301, end: 20190308
  2. COUMADIN [Suspect]
     Active Substance: WARFARIN SODIUM
     Route: 048

REACTIONS (2)
  - Anaemia [Recovered/Resolved]
  - International normalised ratio increased [Recovered/Resolved]

NARRATIVE: CASE EVENT DATE: 20190308
